FAERS Safety Report 8965559 (Version 1)
Quarter: 2012Q4

REPORT INFORMATION
  Report Type: Spontaneous
  Country: US (occurrence: None)
  Receive Date: 20121212
  Receipt Date: 20121212
  Transmission Date: 20130627
  Serious: Yes (Other)
  Sender: FDA-Public Use
  Company Number: A1003004A

PATIENT
  Age: 55 Year
  Sex: Female

DRUGS (1)
  1. DEXTRANASE\GLUCOSE OXIDASE\LACTOPEROXIDASE BOVINE\LYSOZYME HYDROCHLORIDE [Suspect]

REACTIONS (6)
  - Hypersensitivity [None]
  - Gingival swelling [None]
  - Hypoaesthesia oral [None]
  - Gingival pain [None]
  - Stomatitis [None]
  - Oesophageal ulcer [None]
